FAERS Safety Report 5762254-9 (Version None)
Quarter: 2008Q2

REPORT INFORMATION
  Report Type: 
  Country: None (occurrence: None)
  Receive Date: 20080609
  Receipt Date: 20080307
  Transmission Date: 20081010
  Serious: Yes (Other)
  Sender: FDA-Public Use
  Company Number: US-BAYER-200819586GPV

PATIENT

DRUGS (6)
  1. CAMPATH [Suspect]
     Indication: IMMUNOSUPPRESSION
     Dosage: TOTAL DAILY DOSE: 30 MG
     Route: 058
  2. INTRAVENOUS GAMMAGLOBULIN (IVIG) [Suspect]
     Indication: ALLERGENIC DESENSITISATION PROCEDURE
     Route: 042
  3. RITUXAN [Suspect]
     Indication: ALLERGENIC DESENSITISATION PROCEDURE
     Route: 042
  4. PROGRAF [Suspect]
     Indication: IMMUNOSUPPRESSION
     Route: 065
  5. CELLCEPT [Suspect]
     Indication: IMMUNOSUPPRESSION
     Route: 065
  6. STEROIDS [Concomitant]
     Indication: IMMUNOSUPPRESSION
     Route: 065

REACTIONS (2)
  - CYTOMEGALOVIRUS INFECTION [None]
  - HUMAN POLYOMAVIRUS INFECTION [None]
